FAERS Safety Report 18770879 (Version 1)
Quarter: 2021Q1

REPORT INFORMATION
  Report Type: Spontaneous
  Country: FR (occurrence: FR)
  Receive Date: 20210121
  Receipt Date: 20210121
  Transmission Date: 20210419
  Serious: Yes (Hospitalization)
  Sender: FDA-Public Use
  Company Number: FR-UCBSA-2021001457

PATIENT
  Age: 17 Year
  Sex: Male
  Weight: 73 kg

DRUGS (5)
  1. BRIVIACT [Suspect]
     Active Substance: BRIVARACETAM
     Dosage: GRADUAL INCREASE DOSE
     Route: 048
     Dates: start: 2020, end: 2020
  2. BRIVIACT [Suspect]
     Active Substance: BRIVARACETAM
     Dosage: GRADUAL DECREASE DOSE
     Route: 048
     Dates: start: 2020, end: 202006
  3. BRIVIACT [Suspect]
     Active Substance: BRIVARACETAM
     Indication: GENERALISED TONIC-CLONIC SEIZURE
     Dosage: INITIAL DOSE (2 DOASAGE FORM DAILY)
     Route: 048
     Dates: start: 202001, end: 2020
  4. LAMICTAL [Concomitant]
     Active Substance: LAMOTRIGINE
     Indication: PRODUCT USED FOR UNKNOWN INDICATION
     Dosage: UNK
     Route: 048
  5. KEPPRA [Concomitant]
     Active Substance: LEVETIRACETAM
     Indication: PRODUCT USED FOR UNKNOWN INDICATION
     Dosage: 2000 MG DAILY (THEN DECREASE TO 1500 MG/DAY IN MAY)
     Route: 048

REACTIONS (5)
  - Weight increased [Recovered/Resolved]
  - Epilepsy [Recovered/Resolved]
  - Tremor [Recovered/Resolved]
  - Tachycardia paroxysmal [Not Recovered/Not Resolved]
  - Insomnia [Recovered/Resolved]

NARRATIVE: CASE EVENT DATE: 202001
